FAERS Safety Report 9100835 (Version 1)
Quarter: 2013Q1

REPORT INFORMATION
  Report Type: Spontaneous
  Country: US (occurrence: US)
  Receive Date: 20130215
  Receipt Date: 20130215
  Transmission Date: 20140127
  Serious: Yes (Hospitalization, Other)
  Sender: FDA-Public Use
  Company Number: US-TEVA-386233USA

PATIENT
  Age: 54 Year
  Sex: Male

DRUGS (4)
  1. FOLINIC ACID [Suspect]
  2. ZALTRAP [Suspect]
     Indication: COLORECTAL CANCER METASTATIC
     Dosage: EVERY CYCLE
     Route: 042
     Dates: start: 20121024, end: 20121024
  3. FLUOROURACIL [Suspect]
  4. IRINOTECAN [Suspect]

REACTIONS (1)
  - Cerebral haemorrhage [Recovered/Resolved]
